FAERS Safety Report 6691731-1 (Version None)
Quarter: 2010Q2

REPORT INFORMATION
  Report Type: 
  Country: None (occurrence: None)
  Receive Date: 20100422
  Receipt Date: 20090605
  Transmission Date: 20101027
  Serious: No
  Sender: FDA-Public Use
  Company Number: US-ASTRAZENECA-2009UW14368

PATIENT
  Age: 80 Year
  Sex: Female

DRUGS (2)
  1. METOPROLOL SUCCINATE [Suspect]
     Route: 048
     Dates: start: 20050201
  2. METOPROLOL SUCCINATE [Suspect]
     Dosage: TWO 50 MG TABLETS DAILY
     Route: 048
     Dates: start: 20090401

REACTIONS (3)
  - COUGH [None]
  - HEART RATE IRREGULAR [None]
  - SINUSITIS [None]
